FAERS Safety Report 19904692 (Version 1)
Quarter: 2021Q3

REPORT INFORMATION
  Report Type: Spontaneous
  Country: NL (occurrence: NL)
  Receive Date: 20210930
  Receipt Date: 20210930
  Transmission Date: 20211014
  Serious: Yes (Congenital Anomaly)
  Sender: FDA-Public Use
  Company Number: NL-TEVA-2021-NL-1957994

PATIENT
  Age: 0 Week
  Sex: Female

DRUGS (2)
  1. CARBAMAZEPINE TABLET 200MG / BRAND NAME NOT SPECIFIED [Suspect]
     Active Substance: CARBAMAZEPINE
     Indication: EPILEPSY
     Dosage: 2XDD1THERAPY START DATE:THERAPY END DATE:ASKU
  2. FERROFUMARAAT TABLET 200MG / BRAND NAME NOT SPECIFIED [Concomitant]
     Active Substance: FERROUS FUMARATE
     Dosage: 200 MG (MILLIGRAM)THERAPY START DATE:THERAPY END DATE:ASKU

REACTIONS (2)
  - Polydactyly [Unknown]
  - Maternal exposure during pregnancy [Unknown]

NARRATIVE: CASE EVENT DATE: 20210826
